FAERS Safety Report 15847863 (Version 2)
Quarter: 2025Q3

REPORT INFORMATION
  Report Type: Spontaneous
  Country: EU (occurrence: EU)
  Receive Date: 20190121
  Receipt Date: 20250724
  Transmission Date: 20251021
  Serious: Yes (Other)
  Sender: AUROBINDO
  Company Number: EU-AUROBINDO-AUR-APL-2019-001148

PATIENT
  Age: 80 Year
  Sex: Male

DRUGS (4)
  1. OMEPRAZOLE [Suspect]
     Active Substance: OMEPRAZOLE
     Indication: Product used for unknown indication
     Route: 065
  2. IRON [Concomitant]
     Active Substance: IRON
     Indication: Product used for unknown indication
     Route: 065
  3. LORMETAZEPAM [Concomitant]
     Active Substance: LORMETAZEPAM
     Indication: Product used for unknown indication
     Route: 065
  4. MEGESTROL [Concomitant]
     Active Substance: MEGESTROL
     Indication: Product used for unknown indication
     Route: 065

REACTIONS (1)
  - Adenocarcinoma of colon [Unknown]
